FAERS Safety Report 6527320-9 (Version None)
Quarter: 2009Q4

REPORT INFORMATION
  Report Type: 
  Country: None (occurrence: None)
  Receive Date: 20091222
  Receipt Date: 20091004
  Transmission Date: 20100525
  Serious: No
  Sender: FDA-Public Use
  Company Number: ALL1-2009-03055

PATIENT
  Age: 6 Year
  Sex: Male
  Weight: 24.5 kg

DRUGS (2)
  1. VYVANSE [Suspect]
     Indication: ATTENTION DEFICIT/HYPERACTIVITY DISORDER
     Dosage: 20 MG 1X/DAY:QD, ORAL
     Route: 048
     Dates: start: 20091003, end: 20091001
  2. CEFDINIR [Concomitant]

REACTIONS (3)
  - DIARRHOEA [None]
  - INSOMNIA [None]
  - LETHARGY [None]
